FAERS Safety Report 6667782-X (Version None)
Quarter: 2010Q1

REPORT INFORMATION
  Report Type: 
  Country: None (occurrence: None)
  Receive Date: 20100331
  Receipt Date: 20100318
  Transmission Date: 20100710
  Serious: Yes (Life-Threatening, Hospitalization)
  Sender: FDA-Public Use
  Company Number: 2010AL001788

PATIENT
  Age: 60 Year
  Sex: Male

DRUGS (3)
  1. NAPROXEN [Suspect]
     Indication: GOUT
     Dosage: 500 MG; BID; PO
     Route: 048
     Dates: start: 20090501, end: 20091012
  2. ALLOPURINOL [Concomitant]
  3. CO-DYDRAMOL [Concomitant]

REACTIONS (6)
  - DUODENAL ULCER [None]
  - GASTROINTESTINAL HAEMORRHAGE [None]
  - HAEMOGLOBIN DECREASED [None]
  - MIDDLE INSOMNIA [None]
  - PALLOR [None]
  - TACHYCARDIA [None]
